FAERS Safety Report 5211145-0 (Version None)
Quarter: 2006Q4

REPORT INFORMATION
  Report Type: 
  Country: None (occurrence: None)
  Receive Date: 20061114
  Receipt Date: 20060829
  Transmission Date: 20070319
  Serious: No
  Sender: FDA-Public Use
  Company Number: S06-USA-02725-01

PATIENT
  Age: 77 Year
  Sex: Female

DRUGS (3)
  1. NAMENDA [Suspect]
     Indication: DEMENTIA ALZHEIMER'S TYPE
     Dosage: 5 MG QD PO
     Route: 048
     Dates: start: 20060703, end: 20060709
  2. NAMENDA [Suspect]
     Indication: DEMENTIA ALZHEIMER'S TYPE
     Dosage: 5 MG BID PO
     Route: 048
     Dates: start: 20060710
  3. MULTIPLE MEDICATIONS (NOS) [Concomitant]

REACTIONS (3)
  - DECREASED ACTIVITY [None]
  - DEPRESSED MOOD [None]
  - FEELING ABNORMAL [None]
